FAERS Safety Report 25544189 (Version 3)
Quarter: 2025Q3

REPORT INFORMATION
  Report Type: Spontaneous
  Country: JP (occurrence: JP)
  Receive Date: 20250711
  Receipt Date: 20250724
  Transmission Date: 20251020
  Serious: Yes (Hospitalization, Other)
  Sender: PFIZER
  Company Number: JP-ONO-2025JP011618

PATIENT
  Age: 66 Year
  Sex: Male
  Weight: 43 kg

DRUGS (13)
  1. BRAFTOVI [Suspect]
     Active Substance: ENCORAFENIB
     Indication: Colon cancer
     Route: 048
     Dates: start: 20250403
  2. BRAFTOVI [Suspect]
     Active Substance: ENCORAFENIB
     Route: 048
     Dates: start: 20250523, end: 20250606
  3. ELIQUIS [Suspect]
     Active Substance: APIXABAN
     Route: 048
     Dates: start: 20250322, end: 20250428
  4. LAFUTIDINE [Suspect]
     Active Substance: LAFUTIDINE
     Route: 048
     Dates: start: 20250322, end: 20250502
  5. OPDIVO [Suspect]
     Active Substance: NIVOLUMAB
     Indication: Colon cancer recurrent
     Route: 041
     Dates: start: 20250402, end: 20250502
  6. YERVOY [Suspect]
     Active Substance: IPILIMUMAB
     Indication: Colon cancer recurrent
     Route: 041
     Dates: start: 20250402, end: 20250402
  7. MINOCYCLINE HYDROCHLORIDE [Suspect]
     Active Substance: MINOCYCLINE HYDROCHLORIDE
     Route: 048
     Dates: start: 20250403, end: 20250502
  8. SULFAMETHOXAZOLE\TRIMETHOPRIM [Suspect]
     Active Substance: SULFAMETHOXAZOLE\TRIMETHOPRIM
     Dates: start: 20250426, end: 20250430
  9. METHADONE HYDROCHLORIDE [Concomitant]
     Active Substance: METHADONE HYDROCHLORIDE
     Route: 048
     Dates: start: 20250326
  10. MAGNESIUM OXIDE [Concomitant]
     Active Substance: MAGNESIUM OXIDE
     Route: 048
     Dates: start: 20250412
  11. CALONAL [Concomitant]
     Active Substance: ACETAMINOPHEN
     Route: 048
     Dates: start: 20250417
  12. ERBITUX [Concomitant]
     Active Substance: CETUXIMAB
     Indication: Colon cancer
     Route: 042
     Dates: start: 20250403
  13. ERBITUX [Concomitant]
     Active Substance: CETUXIMAB
     Route: 042
     Dates: start: 20250523

REACTIONS (3)
  - Aplastic anaemia [Recovering/Resolving]
  - Cytokine release syndrome [Unknown]
  - Haemophagocytic lymphohistiocytosis [Unknown]

NARRATIVE: CASE EVENT DATE: 20250420
